FAERS Safety Report 17281095 (Version 2)
Quarter: 2020Q1

REPORT INFORMATION
  Report Type: Report from Study
  Country: JP (occurrence: JP)
  Receive Date: 20200117
  Receipt Date: 20200123
  Transmission Date: 20200409
  Serious: Yes (Life-Threatening, Hospitalization, Other)
  Sender: FDA-Public Use
  Company Number: JP-ASTELLAS-2020JP000445

PATIENT
  Age: 82 Year
  Sex: Male
  Weight: 53 kg

DRUGS (29)
  1. FAMOTIDINE D EMEC [Concomitant]
     Indication: ACUTE MYELOID LEUKAEMIA
     Dosage: 10 MG/DAY, UNKNOWN FREQ.
     Route: 048
  2. MEROPENEM. [Concomitant]
     Active Substance: MEROPENEM
     Indication: PRODUCT USED FOR UNKNOWN INDICATION
     Dosage: 1 G/DAY, UNKNOWN FREQ.
     Route: 065
     Dates: start: 20190624, end: 20190628
  3. LASIX [Concomitant]
     Active Substance: FUROSEMIDE
     Indication: CARDIAC FAILURE ACUTE
     Dosage: 20 MG/DAY, UNKNOWN FREQ.
     Route: 065
     Dates: start: 20190827, end: 20190902
  4. BISONO [Concomitant]
     Active Substance: BISOPROLOL
     Indication: ATRIAL FIBRILLATION
     Dosage: 1 MG/DAY, UNKNOWN FREQ.
     Route: 061
     Dates: start: 20190906
  5. MEROPENEM. [Concomitant]
     Active Substance: MEROPENEM
     Indication: PROPHYLAXIS
     Dosage: 0.5 G/DAY, UNKNOWN FREQ.
     Route: 065
     Dates: start: 20191015, end: 20191028
  6. LEVOFLOXACIN. [Concomitant]
     Active Substance: LEVOFLOXACIN
     Indication: BACTERIAL INFECTION
     Dosage: 250 MG/DAY, UNKNOWN FREQ.
     Route: 048
     Dates: start: 20190810, end: 20190827
  7. TAZOPIPE [Concomitant]
     Active Substance: PIPERACILLIN SODIUM\TAZOBACTAM SODIUM
     Dosage: 4.5 G/DAY, UNKNOWN FREQ.
     Route: 065
     Dates: start: 20190907, end: 20190920
  8. ASP2215 [Suspect]
     Active Substance: GILTERITINIB
     Route: 048
     Dates: start: 20190613, end: 20190719
  9. ASP2215 [Suspect]
     Active Substance: GILTERITINIB
     Route: 048
     Dates: start: 20191024, end: 20191030
  10. ASP2215 [Suspect]
     Active Substance: GILTERITINIB
     Dosage: 40 MG/80 MG EVERY OTHER DAY, ONCE DAILY
     Route: 048
     Dates: start: 20191031, end: 20191115
  11. TAZOPIPE [Concomitant]
     Active Substance: PIPERACILLIN SODIUM\TAZOBACTAM SODIUM
     Indication: BACTERIAL INFECTION
     Dosage: 6.75 G/DAY, UNKNOWN FREQ.
     Route: 065
     Dates: start: 20190618, end: 20190624
  12. MINOCYCLINE HYDROCHLORIDE. [Concomitant]
     Active Substance: MINOCYCLINE HYDROCHLORIDE
     Indication: BACTERIAL INFECTION
     Dosage: 200 MG/DAY, UNKNOWN FREQ.
     Route: 065
     Dates: start: 20190727, end: 20190810
  13. ASP2215 [Suspect]
     Active Substance: GILTERITINIB
     Route: 048
     Dates: start: 20190720, end: 20190725
  14. SENNOSIDE [SENNOSIDE A+B] [Concomitant]
     Active Substance: SENNOSIDES A AND B
     Indication: ACUTE MYELOID LEUKAEMIA
     Dosage: 24 MG/DAY, UNKNOWN FREQ.
     Route: 048
  15. PASIL [Concomitant]
     Active Substance: PAZUFLOXACIN MESILATE
     Indication: PRODUCT USED FOR UNKNOWN INDICATION
     Dosage: 1000 MG/DAY, UNKNOWN FREQ.
     Route: 065
     Dates: start: 20190629, end: 20190712
  16. CEFEPIME DIHYDROCHLORIDE [Concomitant]
     Active Substance: CEFEPIME HYDROCHLORIDE
     Indication: BACTERIAL INFECTION
     Dosage: 2 G/DAY, UNKNOWN FREQ.
     Route: 065
     Dates: start: 20190727, end: 20190810
  17. ASP2215 [Suspect]
     Active Substance: GILTERITINIB
     Route: 048
     Dates: start: 20190920, end: 20190927
  18. CUBICIN [Concomitant]
     Active Substance: DAPTOMYCIN
     Indication: ACUTE MYELOID LEUKAEMIA
     Dosage: 300 MG/DAY, UNKNOWN FREQ.
     Route: 048
  19. LEVOFLOXACIN. [Concomitant]
     Active Substance: LEVOFLOXACIN
     Indication: PRODUCT USED FOR UNKNOWN INDICATION
     Dosage: 250 MG/DAY, UNKNOWN FREQ.
     Route: 048
     Dates: start: 20190713, end: 20190725
  20. DARBEPOETIN ALFA [Concomitant]
     Active Substance: DARBEPOETIN ALFA
     Indication: NEPHROGENIC ANAEMIA
     Route: 065
     Dates: start: 20191021
  21. VANCOMYCIN [Concomitant]
     Active Substance: VANCOMYCIN
     Indication: PRODUCT USED FOR UNKNOWN INDICATION
     Dosage: 0.5 G/DAY, UNKNOWN FREQ.
     Route: 065
     Dates: start: 20191023, end: 20191106
  22. ASP2215 [Suspect]
     Active Substance: GILTERITINIB
     Indication: ACUTE MYELOID LEUKAEMIA REFRACTORY
     Route: 048
     Dates: start: 20190605, end: 20190612
  23. FLUCONAZOLE. [Concomitant]
     Active Substance: FLUCONAZOLE
     Indication: ACUTE MYELOID LEUKAEMIA
     Dosage: 100 MG/DAY, UNKNOWN FREQ.
     Route: 048
  24. ISOSORBIDE DINITRATE. [Concomitant]
     Active Substance: ISOSORBIDE DINITRATE
     Indication: CARDIAC FAILURE CHRONIC
     Dosage: 40 MG/DAY, UNKNOWN FREQ.
     Route: 061
     Dates: start: 20190903
  25. ASP2215 [Suspect]
     Active Substance: GILTERITINIB
     Dosage: 40 MG/80 MG EVERY OTHER DAY, ONCE DAILY
     Route: 048
     Dates: start: 20190726, end: 20190919
  26. ASP2215 [Suspect]
     Active Substance: GILTERITINIB
     Dosage: 80 MG/40 MG EVERY OTHER DAY, ONCE DAILY
     Route: 048
     Dates: start: 20190928, end: 20191023
  27. FEBURIC [Concomitant]
     Active Substance: FEBUXOSTAT
     Indication: ACUTE MYELOID LEUKAEMIA
     Dosage: 20 MG/DAY, UNKNOWN FREQ.
     Route: 048
  28. TAZOPIPE [Concomitant]
     Active Substance: PIPERACILLIN SODIUM\TAZOBACTAM SODIUM
     Dosage: 4.5 G/DAY, UNKNOWN FREQ.
     Route: 065
     Dates: start: 20191001, end: 20191015
  29. LEVOFLOXACIN. [Concomitant]
     Active Substance: LEVOFLOXACIN
     Dosage: 250 MG/DAY, UNKNOWN FREQ.
     Route: 048
     Dates: start: 20190921, end: 20190927

REACTIONS (14)
  - Bacterial infection [Recovering/Resolving]
  - Atrial fibrillation [Recovering/Resolving]
  - Bacterial infection [Recovering/Resolving]
  - White blood cell count decreased [Recovered/Resolved]
  - Cardiac failure acute [Recovering/Resolving]
  - Fungal infection [Recovering/Resolving]
  - Bacterial infection [Recovering/Resolving]
  - White blood cell count decreased [Recovered/Resolved]
  - Bacterial infection [Recovering/Resolving]
  - Nephrogenic anaemia [Not Recovered/Not Resolved]
  - Chronic kidney disease [Not Recovered/Not Resolved]
  - Renal failure [Not Recovered/Not Resolved]
  - Haemorrhage [Unknown]
  - White blood cell count decreased [Recovered/Resolved]

NARRATIVE: CASE EVENT DATE: 20190612
